FAERS Safety Report 7375057-9 (Version None)
Quarter: 2011Q1

REPORT INFORMATION
  Report Type: 
  Country: None (occurrence: None)
  Receive Date: 20110325
  Receipt Date: 20110323
  Transmission Date: 20110831
  Serious: Yes (Death, Other)
  Sender: FDA-Public Use
  Company Number: PHHY2011US21692

PATIENT
  Sex: Female
  Weight: 74.2 kg

DRUGS (2)
  1. EXJADE [Suspect]
     Indication: IRON OVERLOAD
     Dosage: ONE DOSE
     Route: 048
  2. EXJADE [Suspect]
     Indication: ESSENTIAL THROMBOCYTHAEMIA
     Dosage: 1000 MG, QD
     Route: 048
     Dates: start: 20101112

REACTIONS (3)
  - DEATH [None]
  - NEUTROPENIA [None]
  - SEPSIS [None]
